FAERS Safety Report 7453930-0 (Version None)
Quarter: 2011Q2

REPORT INFORMATION
  Report Type: 
  Country: None (occurrence: None)
  Receive Date: 20110502
  Receipt Date: 20100930
  Transmission Date: 20111010
  Serious: No
  Sender: FDA-Public Use
  Company Number: US-ASTRAZENECA-2010SE42724

PATIENT
  Age: 65 Year
  Sex: Female

DRUGS (3)
  1. THYROID TAB [Concomitant]
  2. OMEPRAZOLE [Suspect]
     Route: 048
  3. NEXIUM [Suspect]
     Route: 048

REACTIONS (4)
  - DRUG INEFFECTIVE [None]
  - SLEEP DISORDER DUE TO GENERAL MEDICAL CONDITION, INSOMNIA TYPE [None]
  - PNEUMONIA [None]
  - DRUG DOSE OMISSION [None]
